FAERS Safety Report 5441404-8 (Version None)
Quarter: 2007Q3

REPORT INFORMATION
  Report Type: 
  Country: None (occurrence: None)
  Receive Date: 20070830
  Receipt Date: 20070830
  Transmission Date: 20080115
  Serious: Yes (Other)
  Sender: FDA-Public Use
  Company Number: None

PATIENT
  Sex: Male
  Weight: 96.6162 kg

DRUGS (6)
  1. OXYCONTIN [Suspect]
     Indication: ARTHRALGIA
     Dates: start: 20070531
  2. OXYCONTIN [Suspect]
     Indication: BACK PAIN
     Dates: start: 20070531
  3. OXYCONTIN [Suspect]
     Indication: ARTHRALGIA
     Dates: start: 20070629
  4. OXYCONTIN [Suspect]
     Indication: BACK PAIN
     Dates: start: 20070629
  5. OXYCONTIN [Suspect]
     Indication: ARTHRALGIA
     Dates: start: 20070726
  6. OXYCONTIN [Suspect]
     Indication: BACK PAIN
     Dates: start: 20070726

REACTIONS (4)
  - DRUG EFFECT DECREASED [None]
  - HEADACHE [None]
  - INADEQUATE ANALGESIA [None]
  - VERTIGO [None]
